FAERS Safety Report 7831209-2 (Version None)
Quarter: 2011Q4

REPORT INFORMATION
  Report Type: 
  Country: None (occurrence: None)
  Receive Date: 20111021
  Receipt Date: 20111013
  Transmission Date: 20120403
  Serious: Yes (Other)
  Sender: FDA-Public Use
  Company Number: CO-MPIJNJ-2011-04925

PATIENT

DRUGS (3)
  1. ZOLEDRONIC ACID [Concomitant]
  2. VELCADE [Suspect]
     Indication: MULTIPLE MYELOMA
     Dosage: 1.8 MG, UNK
     Route: 042
     Dates: start: 20110901, end: 20110916
  3. DEXAMETHASONE [Concomitant]

REACTIONS (1)
  - CRUSH SYNDROME [None]
